FAERS Safety Report 8437706-3 (Version None)
Quarter: 2012Q2

REPORT INFORMATION
  Report Type: 
  Country: None (occurrence: None)
  Receive Date: 20120614
  Receipt Date: 20120503
  Transmission Date: 20120825
  Serious: No
  Sender: FDA-Public Use
  Company Number: US-AMGEN-USASP2012023183

PATIENT
  Age: 76 Year
  Sex: Female
  Weight: 78.005 kg

DRUGS (6)
  1. METOPROLOL TARTRATE [Concomitant]
     Indication: HYPERTENSION
     Dosage: 50 MG, BID
  2. PREVACID [Concomitant]
     Indication: GASTROOESOPHAGEAL REFLUX DISEASE
  3. PROLIA [Suspect]
     Indication: OSTEOPOROSIS POSTMENOPAUSAL
     Dosage: 60 MG, Q6MO
     Dates: start: 20120302
  4. AVAPRO [Concomitant]
     Dosage: 75 MG, QD
  5. HYDROCHLOROTHIAZIDE [Concomitant]
     Indication: HYPERTENSION
     Dosage: 125 MG, QD
  6. ASPIRIN [Concomitant]
     Dosage: 81 MG, QD

REACTIONS (10)
  - ABDOMINAL PAIN [None]
  - PRURITUS GENERALISED [None]
  - URTICARIA [None]
  - DYSPNOEA [None]
  - FATIGUE [None]
  - ASTHENIA [None]
  - HEADACHE [None]
  - INSOMNIA [None]
  - ABDOMINAL PAIN UPPER [None]
  - NAUSEA [None]
